FAERS Safety Report 4809705-1 (Version None)
Quarter: 2005Q4

REPORT INFORMATION
  Report Type: 
  Country: None (occurrence: None)
  Receive Date: 20051021
  Receipt Date: 20050919
  Transmission Date: 20060501
  Serious: Yes (Other)
  Sender: FDA-Public Use
  Company Number: US_0504114906

PATIENT
  Age: 31 Year
  Sex: Female
  Weight: 74 kg

DRUGS (5)
  1. ZYPREXA [Suspect]
     Indication: BIPOLAR DISORDER
     Dosage: 5 MG
     Dates: start: 20000131, end: 20011015
  2. ELAVIL [Concomitant]
  3. DEPAKOTE [Concomitant]
  4. BENADRYL [Concomitant]
  5. ESKALITH [Concomitant]

REACTIONS (2)
  - DIABETES MELLITUS NON-INSULIN-DEPENDENT [None]
  - PULMONARY EMBOLISM [None]
